FAERS Safety Report 4404210-9 (Version None)
Quarter: 2004Q3

REPORT INFORMATION
  Report Type: 
  Country: None (occurrence: None)
  Receive Date: 20040721
  Receipt Date: 20040721
  Transmission Date: 20050211
  Serious: Yes (Hospitalization)
  Sender: FDA-Public Use
  Company Number: None

PATIENT
  Age: 51 Year
  Sex: Male
  Weight: 68.4 kg

DRUGS (11)
  1. GATIFLOXACIN [Suspect]
     Indication: URINARY TRACT INFECTION
     Dosage: 400MG ORAL
     Route: 048
     Dates: start: 20040223, end: 20040302
  2. ASPIRIN [Concomitant]
  3. DOCUSATE NA [Concomitant]
  4. MULTI-VITAMIN [Concomitant]
  5. ACETAMINOPHEN [Concomitant]
  6. ALOH/MGOH/SIMTH/ [Concomitant]
  7. DIAZEPAM [Concomitant]
  8. SIMETHICONE [Concomitant]
  9. OXYBUTYNIN CHLORIDE [Concomitant]
  10. LORATADINE [Concomitant]
  11. ALBUTEROL [Concomitant]

REACTIONS (2)
  - AGITATION [None]
  - DELIRIUM [None]
